FAERS Safety Report 24071834 (Version 2)
Quarter: 2024Q3

REPORT INFORMATION
  Report Type: Other
  Country: RU (occurrence: RU)
  Receive Date: 20240710
  Receipt Date: 20240806
  Transmission Date: 20241017
  Serious: Yes (Life-Threatening, Hospitalization, Disabling)
  Sender: DEXCEL
  Company Number: RU-DEXPHARM-2024-2199

PATIENT
  Sex: Female

DRUGS (1)
  1. CHLORHEXIDINE [Suspect]
     Active Substance: CHLORHEXIDINE
     Indication: Surgery
     Route: 040
     Dates: start: 20220323, end: 20220323

REACTIONS (2)
  - Incorrect route of product administration [Unknown]
  - Poisoning [Unknown]
